FAERS Safety Report 15485319 (Version 1)
Quarter: 2018Q4

REPORT INFORMATION
  Report Type: Spontaneous
  Country: US (occurrence: US)
  Receive Date: 20181010
  Receipt Date: 20181010
  Transmission Date: 20190205
  Serious: No
  Sender: FDA-Public Use
  Company Number: US-ROCHE-2164622

PATIENT
  Sex: Male
  Weight: 72.64 kg

DRUGS (1)
  1. ALECENSA [Suspect]
     Active Substance: ALECTINIB HYDROCHLORIDE
     Indication: NON-SMALL CELL LUNG CANCER
     Dosage: ONGOING: YES
     Route: 065
     Dates: start: 20171201

REACTIONS (3)
  - Fatigue [Not Recovered/Not Resolved]
  - Dyspnoea [Recovered/Resolved]
  - Diarrhoea [Recovering/Resolving]
